FAERS Safety Report 9625118 (Version 2)
Quarter: 2013Q4

REPORT INFORMATION
  Report Type: Report from Study
  Country: DE (occurrence: DE)
  Receive Date: 20131016
  Receipt Date: 20131017
  Transmission Date: 20140711
  Serious: Yes (Hospitalization)
  Sender: FDA-Public Use
  Company Number: DE-MERCK-1310DEU005171

PATIENT
  Age: 32 Year
  Sex: Male
  Weight: 83 kg

DRUGS (3)
  1. BOCEPREVIR [Suspect]
     Indication: CHRONIC HEPATITIS C
     Dosage: 800 MG, TID
     Route: 048
     Dates: start: 20121102, end: 20130227
  2. REBETOL [Suspect]
     Indication: CHRONIC HEPATITIS C
     Dosage: 500 MG, BID
     Dates: start: 20121005, end: 20130227
  3. PEGINTRON [Suspect]
     Indication: CHRONIC HEPATITIS C
     Dosage: 100MICROGRAMS WEEKLY
     Dates: start: 20121005, end: 20130222

REACTIONS (1)
  - Pyrexia [Recovered/Resolved]
